FAERS Safety Report 9570328 (Version 2)
Quarter: 2013Q3

REPORT INFORMATION
  Report Type: Spontaneous
  Country: US (occurrence: US)
  Receive Date: 20130930
  Receipt Date: 20130930
  Transmission Date: 20140515
  Serious: Yes (Other)
  Sender: FDA-Public Use
  Company Number: US-AMGEN-USASP2013047332

PATIENT
  Age: 63 Year
  Sex: Female

DRUGS (23)
  1. ENBREL [Suspect]
     Indication: RHEUMATOID ARTHRITIS
     Dosage: 50 MG, QWK
     Route: 065
     Dates: start: 20110414
  2. ENBREL [Suspect]
     Dosage: UNK
     Route: 065
  3. HYOMAX [Concomitant]
     Dosage: UNK UNK, UNK SR
  4. PREDNISONE [Concomitant]
     Dosage: UNK
  5. PROCARDIA                          /00340701/ [Concomitant]
     Dosage: UNK UNK, UNK XL
  6. LIPITOR [Concomitant]
     Dosage: UNK
  7. TRILIPIX [Concomitant]
     Dosage: UNK UNK, UNK DR
  8. POTASSIUM CHLORIDE [Concomitant]
     Dosage: UNK UNK, UNK ER
  9. LAMOTRIGINE [Concomitant]
     Dosage: UNK
  10. FOLIC ACID [Concomitant]
     Dosage: UNK
  11. LABETALOL HCL [Concomitant]
     Dosage: UNK
  12. VALTREX [Concomitant]
     Dosage: UNK
  13. PRILOSEC                           /00661201/ [Concomitant]
     Dosage: UNK UNK, UNK DR
  14. TRAZODONE [Concomitant]
     Dosage: UNK
  15. RESTORIL                           /00054301/ [Concomitant]
     Dosage: UNK
  16. LEXAPRO [Concomitant]
     Dosage: UNK
  17. ADDERALL [Concomitant]
     Dosage: UNK
  18. CALCIUM [Concomitant]
     Dosage: UNK
  19. WELLBUTRIN XL [Concomitant]
     Dosage: UNK
  20. BENICAR HCT [Concomitant]
     Dosage: UNK
  21. VITAMIN D3 [Concomitant]
     Dosage: UNK
  22. VACCINES [Concomitant]
     Dosage: UNK
  23. METHOTREXATE [Concomitant]
     Dosage: UNK

REACTIONS (12)
  - Pneumonia [Recovered/Resolved]
  - Cough [Not Recovered/Not Resolved]
  - Musculoskeletal pain [Recovered/Resolved]
  - Arthralgia [Recovered/Resolved]
  - Neck pain [Recovered/Resolved]
  - Back pain [Recovered/Resolved]
  - Sensory disturbance [Recovered/Resolved]
  - Dyspnoea [Recovered/Resolved]
  - Injection site pain [Recovered/Resolved]
  - Injection site reaction [Not Recovered/Not Resolved]
  - Injection site swelling [Not Recovered/Not Resolved]
  - Injection site warmth [Not Recovered/Not Resolved]
